FAERS Safety Report 12990350 (Version 1)
Quarter: 2016Q4

REPORT INFORMATION
  Report Type: Spontaneous
  Country: JP (occurrence: JP)
  Receive Date: 20161201
  Receipt Date: 20161201
  Transmission Date: 20170207
  Serious: Yes (Hospitalization, Other)
  Sender: FDA-Public Use
  Company Number: JP-BAYER-2016-207946

PATIENT
  Age: 68 Year
  Sex: Female
  Weight: 53 kg

DRUGS (5)
  1. AMLODIPINE [Concomitant]
     Active Substance: AMLODIPINE BESYLATE
     Indication: HYPERTENSION
     Dosage: 2.5 MG, QD
     Route: 048
     Dates: start: 20150625, end: 20161015
  2. PROMAC [NITROFURANTOIN] [Concomitant]
     Indication: DYSGEUSIA
     Dosage: 150 MG, BID
     Route: 048
     Dates: start: 20160804, end: 20161015
  3. CELECOXIB. [Concomitant]
     Active Substance: CELECOXIB
     Dosage: 200 MG, BID
     Route: 048
     Dates: end: 20161015
  4. LANSOPRAZOLE. [Concomitant]
     Active Substance: LANSOPRAZOLE
     Indication: OESOPHAGITIS
     Dosage: 15 MG, QD
     Route: 048
     Dates: start: 20150604
  5. STIVARGA [Suspect]
     Active Substance: REGORAFENIB
     Indication: COLORECTAL CANCER
     Dosage: 160 MG, QD
     Route: 048
     Dates: start: 20160926, end: 20161015

REACTIONS (10)
  - Haematochezia [None]
  - Hyponatraemia [None]
  - Platelet count decreased [Recovering/Resolving]
  - Disseminated intravascular coagulation [None]
  - Hepatic function abnormal [Recovering/Resolving]
  - Asthenia [None]
  - Cholecystitis [None]
  - Pyrexia [Not Recovered/Not Resolved]
  - Diarrhoea [None]
  - Anaemia [None]

NARRATIVE: CASE EVENT DATE: 2016
